FAERS Safety Report 25138411 (Version 2)
Quarter: 2025Q2

REPORT INFORMATION
  Report Type: Spontaneous
  Country: US (occurrence: US)
  Receive Date: 20250330
  Receipt Date: 20250510
  Transmission Date: 20250717
  Serious: No
  Sender: SANOFI AVENTIS
  Company Number: US-SANOFI-02461851

PATIENT
  Age: 10 Year
  Sex: Female
  Weight: 30.36 kg

DRUGS (7)
  1. DUPIXENT [Suspect]
     Active Substance: DUPILUMAB
     Indication: Dermatitis atopic
     Dosage: 200 MG, QOW
     Route: 058
  2. CETIRIZINE HCL [Concomitant]
     Active Substance: CETIRIZINE HYDROCHLORIDE
  3. HYDROXYZINE HYDROCHLORIDE [Concomitant]
     Active Substance: HYDROXYZINE HYDROCHLORIDE
  4. MUPIROCIN [Concomitant]
     Active Substance: MUPIROCIN
  5. MOMETASONE FUROATE [Concomitant]
     Active Substance: MOMETASONE FUROATE
  6. PIMECROLIMUS [Concomitant]
     Active Substance: PIMECROLIMUS
  7. CHILDREN^S ALLERGY FEXOFENADINE HYDROCHLORIDE [Concomitant]

REACTIONS (1)
  - Dermatitis atopic [Unknown]
